FAERS Safety Report 5224021-4 (Version None)
Quarter: 2007Q1

REPORT INFORMATION
  Report Type: 
  Country: None (occurrence: None)
  Receive Date: 20070130
  Receipt Date: 20070122
  Transmission Date: 20070707
  Serious: Yes (Hospitalization)
  Sender: FDA-Public Use
  Company Number: GB9211218OCT2002

PATIENT
  Sex: Female
  Weight: 50 kg

DRUGS (10)
  1. SIROLIMUS [Suspect]
     Indication: RENAL TRANSPLANT
     Route: 048
     Dates: start: 20020905, end: 20030102
  2. SIROLIMUS [Suspect]
     Indication: IMMUNOSUPPRESSION
  3. RANITIDINE [Concomitant]
  4. FERROUS SULFATE TAB [Concomitant]
  5. ADALAT PA [Concomitant]
  6. LISINOPRIL [Concomitant]
  7. FUROSEMIDE [Concomitant]
  8. CEPHALEXIN [Concomitant]
  9. PREDNISOLONE [Concomitant]
     Route: 048
  10. FOLIC ACID [Concomitant]

REACTIONS (1)
  - CHRONIC ALLOGRAFT NEPHROPATHY [None]
